FAERS Safety Report 13081479 (Version 2)
Quarter: 2017Q2

REPORT INFORMATION
  Report Type: Spontaneous
  Country: US (occurrence: US)
  Receive Date: 20170103
  Receipt Date: 20170510
  Transmission Date: 20170830
  Serious: No
  Sender: FDA-Public Use
  Company Number: US-PFIZER INC-2016596757

PATIENT
  Age: 67 Year
  Sex: Female
  Weight: 82.99 kg

DRUGS (2)
  1. IBRANCE [Suspect]
     Active Substance: PALBOCICLIB
     Indication: BREAST CANCER METASTATIC
     Dosage: 125 MG CAPSULE, CYCLIC ( DAYS 1-21 EVERY 28 DAYS)
     Route: 048
     Dates: start: 20160914
  2. IBRANCE [Suspect]
     Active Substance: PALBOCICLIB
     Dosage: 125 MG, CYCLIC (DAYS 1-21 EVERY28 DAYS)
     Route: 048
     Dates: start: 20160914

REACTIONS (2)
  - Urinary tract infection [Unknown]
  - Fatigue [Not Recovered/Not Resolved]
